FAERS Safety Report 10910399 (Version 1)
Quarter: 2015Q1

REPORT INFORMATION
  Report Type: Spontaneous
  Country: US (occurrence: US)
  Receive Date: 20150312
  Receipt Date: 20150312
  Transmission Date: 20150721
  Serious: No
  Sender: FDA-Public Use
  Company Number: US-SA-2014SA164433

PATIENT
  Age: 60 Year
  Sex: Female

DRUGS (1)
  1. NASACORT ALLERGY 24HR [Suspect]
     Active Substance: TRIAMCINOLONE ACETONIDE
     Indication: HYPERSENSITIVITY
     Dosage: USING NASACORT ALLERGY 2 MONTHS AGO
     Route: 045

REACTIONS (5)
  - Sinus disorder [Not Recovered/Not Resolved]
  - Drug administration error [Unknown]
  - Epistaxis [Not Recovered/Not Resolved]
  - Nasal dryness [Unknown]
  - Nasal congestion [Not Recovered/Not Resolved]
